FAERS Safety Report 23884300 (Version 1)
Quarter: 2024Q2

REPORT INFORMATION
  Report Type: Spontaneous
  Country: US (occurrence: None)
  Receive Date: 20240521
  Receipt Date: 20240521
  Transmission Date: 20240717
  Serious: Yes (Other)
  Sender: FDA-Public Use
  Company Number: None

PATIENT
  Age: 71 Year
  Sex: Male

DRUGS (1)
  1. PEMBROLIZUMAB [Suspect]
     Active Substance: PEMBROLIZUMAB
     Dates: start: 20231023, end: 20240411

REACTIONS (2)
  - Myalgia [None]
  - Infusion related reaction [None]

NARRATIVE: CASE EVENT DATE: 20240411
